FAERS Safety Report 4936984-2 (Version None)
Quarter: 2006Q1

REPORT INFORMATION
  Report Type: 
  Country: None (occurrence: None)
  Receive Date: 20060309
  Receipt Date: 20060216
  Transmission Date: 20060701
  Serious: Yes (Hospitalization)
  Sender: FDA-Public Use
  Company Number: FR-ROCHE-437126

PATIENT
  Age: 70 Year
  Sex: Female

DRUGS (8)
  1. ROCEPHIN [Suspect]
     Indication: DRUG USE FOR UNKNOWN INDICATION
     Dosage: FORMULATION REPORTED AS INJECTABLE SOLUTION
     Route: 042
     Dates: start: 20060112, end: 20060117
  2. TRIFLUCAN [Suspect]
     Indication: DRUG USE FOR UNKNOWN INDICATION
     Dosage: INJECTABLE SOLUTION. STRENGTH REPORTED AS 2MG/ML
     Route: 042
     Dates: start: 20060116, end: 20060116
  3. LASILIX [Suspect]
     Indication: DRUG USE FOR UNKNOWN INDICATION
     Dosage: INJECTABLE SOLUTION. STRENGTH REPORTED AS 20MG/2ML
     Route: 042
     Dates: start: 20060116, end: 20060116
  4. BACTRIM [Concomitant]
     Indication: ANTI-INFECTIVE THERAPY
     Route: 065
     Dates: start: 20051226, end: 20060110
  5. RIFAMPICIN [Concomitant]
     Indication: DRUG USE FOR UNKNOWN INDICATION
     Route: 065
     Dates: start: 20060102, end: 20060116
  6. VANCOMYCIN [Concomitant]
     Indication: DRUG USE FOR UNKNOWN INDICATION
     Route: 065
     Dates: start: 20060110, end: 20060119
  7. VFEND [Concomitant]
     Indication: DRUG USE FOR UNKNOWN INDICATION
     Route: 065
     Dates: start: 20060116
  8. ABELCET [Concomitant]
     Indication: DRUG USE FOR UNKNOWN INDICATION
     Route: 065
     Dates: start: 20060126

REACTIONS (1)
  - URTICARIA [None]
